FAERS Safety Report 18912514 (Version 3)
Quarter: 2025Q1

REPORT INFORMATION
  Report Type: Report from Study
  Country: CA (occurrence: CA)
  Receive Date: 20210218
  Receipt Date: 20250321
  Transmission Date: 20250409
  Serious: Yes (Other)
  Sender: TAKEDA
  Company Number: CA-TAKEDA-2021TUS008619

PATIENT
  Age: 50 Year
  Sex: Female

DRUGS (26)
  1. VEDOLIZUMAB [Suspect]
     Active Substance: VEDOLIZUMAB
     Indication: Crohn^s disease
  2. VEDOLIZUMAB [Suspect]
     Active Substance: VEDOLIZUMAB
     Dosage: 300 MILLIGRAM, Q4WEEKS
     Dates: start: 20210908
  3. VEDOLIZUMAB [Suspect]
     Active Substance: VEDOLIZUMAB
     Dosage: 300 MILLIGRAM, Q4WEEKS
  4. ENTOCORT [Concomitant]
     Active Substance: BUDESONIDE
  5. EDOXABAN TOSYLATE [Concomitant]
     Active Substance: EDOXABAN TOSYLATE
  6. BUPROPION [Concomitant]
     Active Substance: BUPROPION
  7. VALACYCLOVIR [Concomitant]
     Active Substance: VALACYCLOVIR HYDROCHLORIDE
  8. LETROZOLE [Concomitant]
     Active Substance: LETROZOLE
  9. OXAZEPAM [Concomitant]
     Active Substance: OXAZEPAM
  10. ALBUTEROL [Concomitant]
     Active Substance: ALBUTEROL
  11. PANTOPRAZOLE [Concomitant]
     Active Substance: PANTOPRAZOLE
  12. ZOPICLONE [Concomitant]
     Active Substance: ZOPICLONE
  13. SOLIFENACIN [Concomitant]
     Active Substance: SOLIFENACIN
  14. ATROVENT [Concomitant]
     Active Substance: IPRATROPIUM BROMIDE
  15. GABAPENTIN [Concomitant]
     Active Substance: GABAPENTIN
  16. BILASTINE [Concomitant]
     Active Substance: BILASTINE
  17. SYMBICORT [Concomitant]
     Active Substance: BUDESONIDE\FORMOTEROL FUMARATE DIHYDRATE
  18. ALIGN [Concomitant]
     Active Substance: BIFIDOBACTERIUM LONGUM SUBSP. INFANTIS
  19. POLYETHYLENE GLYCOL 3350 [Concomitant]
     Active Substance: POLYETHYLENE GLYCOL 3350
     Dosage: UNK UNK, QD
  20. Dulcolax [Concomitant]
  21. MOMETASONE [Concomitant]
     Active Substance: MOMETASONE
  22. CLODRONATE DISODIUM [Concomitant]
     Active Substance: CLODRONATE DISODIUM
  23. QUETIAPINE [Concomitant]
     Active Substance: QUETIAPINE
  24. FERROUS FUMARATE [Concomitant]
     Active Substance: FERROUS FUMARATE
  25. FUCIDIN [Concomitant]
     Active Substance: FUSIDATE SODIUM
     Route: 061
  26. SYNTHROID [Concomitant]
     Active Substance: LEVOTHYROXINE SODIUM

REACTIONS (2)
  - Pneumonia [Recovered/Resolved]
  - Off label use [Unknown]

NARRATIVE: CASE EVENT DATE: 20210908
